FAERS Safety Report 19588425 (Version 1)
Quarter: 2021Q3

REPORT INFORMATION
  Report Type: Spontaneous
  Country: DE (occurrence: DE)
  Receive Date: 20210721
  Receipt Date: 20210721
  Transmission Date: 20211014
  Serious: Yes (Hospitalization)
  Sender: FDA-Public Use
  Company Number: DE-ACCORD-232524

PATIENT
  Age: 69 Year
  Sex: Female
  Weight: 46 kg

DRUGS (13)
  1. ALGELDRATE\MAGNESIUM HYDROXIDE [Concomitant]
     Active Substance: ALGELDRATE\MAGNESIUM HYDROXIDE
     Dosage: 230 MG, AS NEEDED, SUSPENSION
     Route: 048
  2. DALTEPARIN [Concomitant]
     Active Substance: DALTEPARIN
     Dosage: 2500 IU, 0?0?1?0, PRE?FILLED SYRINGES
     Route: 058
  3. LEVOTHYROXINE. [Concomitant]
     Active Substance: LEVOTHYROXINE
     Dosage: 0.025 MG, 1?0?0?0, TABLET
     Route: 048
  4. COLECALCIFEROL [Concomitant]
     Active Substance: CHOLECALCIFEROL
     Dosage: 20,000 IU, ACCORDING TO THE SCHEME, CAPSULE
     Route: 048
  5. HYDROMORPHONE/HYDROMORPHONE HYDROCHLORIDE [Concomitant]
     Active Substance: HYDROMORPHONE
     Dosage: 1.3 MG, AS NEEDED, CAPSULE
     Route: 048
  6. CARBOPLATIN. [Suspect]
     Active Substance: CARBOPLATIN
     Indication: PRODUCT USED FOR UNKNOWN INDICATION
     Dosage: ACCORDING TO THE SCHEME, SOLUTION FOR INJECTION / INFUSION
     Route: 042
  7. ACETYLCYSTEINE. [Concomitant]
     Active Substance: ACETYLCYSTEINE
     Dosage: 600 MG, 1?0?0?0, EFFERVESCENT TABLETS
     Route: 048
  8. METAMIZOLE SODIUM [Concomitant]
     Active Substance: METAMIZOLE SODIUM
     Dosage: 500 MG, AS NEEDED, DROPS
     Route: 048
  9. PANTOPRAZOLE [Concomitant]
     Active Substance: PANTOPRAZOLE
     Dosage: 40 MG, 1?0?0?0, TABLET
     Route: 048
  10. SODIUM PICOSULFATE [Concomitant]
     Active Substance: SODIUM PICOSULFATE
     Dosage: 3.75 MG, 1?0?0?0, DROPS
     Route: 048
  11. TEMAZEPAM. [Concomitant]
     Active Substance: TEMAZEPAM
     Dosage: 10 MG, 0?0?0?1, CAPSULE
     Route: 048
  12. GEMCITABINE/GEMCITABINE HYDROCHLORIDE [Suspect]
     Active Substance: GEMCITABINE\GEMCITABINE HYDROCHLORIDE
     Indication: PRODUCT USED FOR UNKNOWN INDICATION
     Dosage: ACCORDING TO THE SCHEME, SOLUTION FOR INJECTION / INFUSION
     Route: 042
  13. TRAMADOL. [Concomitant]
     Active Substance: TRAMADOL
     Dosage: 75 MG, AS NEEDED, ORAL SOLUTION
     Route: 048

REACTIONS (5)
  - Abdominal pain lower [Recovering/Resolving]
  - Renal impairment [Recovering/Resolving]
  - General physical health deterioration [Recovering/Resolving]
  - Oliguria [Recovering/Resolving]
  - Pyrexia [Recovering/Resolving]
